FAERS Safety Report 15603169 (Version 1)
Quarter: 2018Q4

REPORT INFORMATION
  Report Type: Report from Study
  Country: DE (occurrence: DE)
  Receive Date: 20181109
  Receipt Date: 20181109
  Transmission Date: 20190205
  Serious: Yes (Hospitalization)
  Sender: FDA-Public Use
  Company Number: DE-PFIZER INC-2018455373

PATIENT
  Age: 48 Year
  Sex: Female
  Weight: 112 kg

DRUGS (14)
  1. SELEN [Concomitant]
     Active Substance: SELENIUM
     Indication: PROPHYLAXIS
     Route: 065
     Dates: start: 2007
  2. DEKRISTOL [Concomitant]
     Active Substance: CHOLECALCIFEROL
     Indication: PROPHYLAXIS
     Route: 065
     Dates: start: 2007
  3. ZINKOROT [Concomitant]
     Active Substance: ZINC OROTATE
     Indication: PROPHYLAXIS
     Route: 065
     Dates: start: 2007
  4. MST [Concomitant]
     Indication: PAIN
     Route: 065
     Dates: start: 2015
  5. XGEVA [Concomitant]
     Active Substance: DENOSUMAB
     Indication: BONE DISORDER
     Route: 065
  6. NOVALGIN (METAMIZOLE SODIUM) [Concomitant]
     Active Substance: METAMIZOLE SODIUM
     Indication: PAIN
     Route: 065
     Dates: start: 2015
  7. XARELTO [Concomitant]
     Active Substance: RIVAROXABAN
     Indication: PROPHYLAXIS
     Route: 065
     Dates: start: 2015
  8. CEFUROXIME. [Suspect]
     Active Substance: CEFUROXIME
     Indication: BRONCHITIS
     Dosage: 1000 MG, 1X/DAY
     Route: 041
     Dates: start: 20170203, end: 20170212
  9. CEFUROXIME. [Suspect]
     Active Substance: CEFUROXIME
     Dosage: 4500 MG, 1X/DAY
     Route: 041
     Dates: start: 20170130, end: 20170131
  10. PREGABALIN. [Concomitant]
     Active Substance: PREGABALIN
     Indication: PAIN
     Route: 065
     Dates: start: 2015
  11. PANTOZOL [Concomitant]
     Active Substance: PANTOPRAZOLE SODIUM
     Indication: PROPHYLAXIS
     Route: 065
     Dates: start: 2015
  12. ORTOTON [Concomitant]
     Indication: PAIN
     Route: 065
     Dates: start: 2015
  13. ZOFRAN [Concomitant]
     Active Substance: ONDANSETRON HYDROCHLORIDE
     Indication: NAUSEA
     Route: 065
     Dates: start: 20161107
  14. ABRAXANE [Suspect]
     Active Substance: PACLITAXEL
     Indication: PLASMA CELL MYELOMA
     Dosage: 233 MG, WEEKLY
     Route: 041
     Dates: start: 20161104

REACTIONS (8)
  - Dysgeusia [Recovered/Resolved]
  - Diarrhoea [Recovered/Resolved]
  - Nausea [Recovered/Resolved]
  - Dry mouth [Not Recovered/Not Resolved]
  - Bronchitis [Recovered/Resolved]
  - Parosmia [Recovered/Resolved]
  - Dyspnoea exertional [Recovered/Resolved]
  - Nail disorder [Not Recovered/Not Resolved]

NARRATIVE: CASE EVENT DATE: 20170115
